FAERS Safety Report 9965694 (Version 2)
Quarter: 2014Q2

REPORT INFORMATION
  Report Type: Report from Study
  Country: US (occurrence: US)
  Receive Date: 20140305
  Receipt Date: 20140424
  Transmission Date: 20141212
  Serious: Yes (Other)
  Sender: FDA-Public Use
  Company Number: US-ABBVIE-13P-163-1125656-00

PATIENT
  Age: 25 Year
  Sex: Female
  Weight: 52.66 kg

DRUGS (7)
  1. HUMIRA [Suspect]
     Indication: CROHN^S DISEASE
     Dates: start: 201010, end: 201010
  2. HUMIRA [Suspect]
     Dates: start: 201010, end: 201010
  3. HUMIRA [Suspect]
     Dates: start: 201011, end: 201212
  4. HUMIRA [Suspect]
     Dates: start: 201212, end: 201307
  5. HUMIRA [Suspect]
     Dates: start: 201307
  6. MERCAPTOPURINE [Concomitant]
     Indication: CROHN^S DISEASE
  7. PRENATAL VITAMINS [Concomitant]
     Indication: PRODUCT USED FOR UNKNOWN INDICATION

REACTIONS (4)
  - Premature labour [Recovered/Resolved]
  - Inflammatory marker increased [Unknown]
  - Subchorionic haemorrhage [Recovered/Resolved]
  - Subchorionic haemorrhage [Recovered/Resolved]
